FAERS Safety Report 7611211-6 (Version None)
Quarter: 2011Q3

REPORT INFORMATION
  Report Type: 
  Country: None (occurrence: None)
  Receive Date: 20110707
  Receipt Date: 20110623
  Transmission Date: 20111222
  Serious: Yes (Other)
  Sender: FDA-Public Use
  Company Number: AUR-APL-2011-01777

PATIENT
  Age: 72 Year
  Sex: Female
  Weight: 77.1115 kg

DRUGS (5)
  1. THEOPHYLLINE [Concomitant]
  2. VALACYCLOVIR [Suspect]
     Indication: HERPES ZOSTER
     Dosage: ON 18-MAY-2011, TOOK 2 DOSES OF VALACYCLOVIR 500 MG (1 TABLET IN THE AFTERNOON... SEE IMAGE
     Route: 048
     Dates: start: 20110518, end: 20110519
  3. LOSARTAN POTASSIUM [Concomitant]
  4. DILTIAZEM [Concomitant]
  5. LANOXIN [Concomitant]

REACTIONS (7)
  - DRY MOUTH [None]
  - TREMOR [None]
  - PRODUCT SUBSTITUTION ISSUE [None]
  - DYSPHAGIA [None]
  - ERYTHEMA [None]
  - HEART RATE INCREASED [None]
  - HYPOAESTHESIA ORAL [None]
